FAERS Safety Report 19193926 (Version 1)
Quarter: 2021Q2

REPORT INFORMATION
  Report Type: Spontaneous
  Country: GB (occurrence: GB)
  Receive Date: 20210429
  Receipt Date: 20210429
  Transmission Date: 20210717
  Serious: Yes (Other)
  Sender: FDA-Public Use
  Company Number: GB-EMCURE PHARMACEUTICALS LTD-2021-EPL-001412

PATIENT
  Age: 71 Year
  Sex: Female
  Weight: 54 kg

DRUGS (13)
  1. LAXIDO [Concomitant]
     Active Substance: POLYETHYLENE GLYCOL 3350\POTASSIUM CHLORIDE\SODIUM BICARBONATE\SODIUM CHLORIDE
     Indication: ILL-DEFINED DISORDER
     Dosage: 1 TO BE TAKEN TWICE DAILY AS NEEDED
     Dates: start: 20191007
  2. ACCRETE D3 [Concomitant]
     Active Substance: CALCIUM CARBONATE\CHOLECALCIFEROL
     Indication: ILL-DEFINED DISORDER
     Dosage: TAKE ONE TWICE DAILY
     Dates: start: 20200710
  3. COTRIMOXAZOLE [Suspect]
     Active Substance: SULFAMETHOXAZOLE\TRIMETHOPRIM
     Indication: ILL-DEFINED DISORDER
     Dosage: UNK
     Dates: start: 20210412
  4. AMLODIPINE [Concomitant]
     Active Substance: AMLODIPINE BESYLATE
     Indication: ILL-DEFINED DISORDER
     Dosage: TAKE ONE DAILY
     Dates: start: 20200416
  5. METRONIDAZOLE. [Concomitant]
     Active Substance: METRONIDAZOLE
     Indication: ILL-DEFINED DISORDER
     Dosage: TAKE ONE 3 TIMES/DAY FOR INFECTION
     Dates: start: 20210128, end: 20210204
  6. PARACETAMOL [Concomitant]
     Active Substance: ACETAMINOPHEN
     Indication: ILL-DEFINED DISORDER
     Dosage: TAKE 1 OR 2 4 TIMES/DAY
     Dates: start: 20200416
  7. TRAMADOL. [Concomitant]
     Active Substance: TRAMADOL
     Indication: ILL-DEFINED DISORDER
     Dosage: TAKE 1 OR 2 AS DIRECTED
     Dates: start: 20200416
  8. URSODEOXYCHOLIC ACID [Concomitant]
     Active Substance: URSODIOL
     Indication: ILL-DEFINED DISORDER
     Dosage: 1 TO BE TAKEN TWICE DAILY
     Dates: start: 20210222
  9. COTRIMOXAZOLE [Suspect]
     Active Substance: SULFAMETHOXAZOLE\TRIMETHOPRIM
     Dosage: TAKE TWO TWICE A DAY FOR INFECTION
     Dates: start: 20210408, end: 20210415
  10. ALENDRONIC ACID [Concomitant]
     Active Substance: ALENDRONIC ACID
     Indication: ILL-DEFINED DISORDER
     Dosage: TAKE ONE WEEKLY
     Dates: start: 20200416
  11. CEFALEXIN [Concomitant]
     Active Substance: CEPHALEXIN
     Indication: ILL-DEFINED DISORDER
     Dosage: TAKE ONE 3 TIMES/DAY FOR INFECTION
     Dates: start: 20210128, end: 20210204
  12. OMEPRAZOLE. [Concomitant]
     Active Substance: OMEPRAZOLE
     Indication: ILL-DEFINED DISORDER
     Dosage: TAKE  2  MANE BEFORE FOOD
     Dates: start: 20200416
  13. ATORVASTATIN [Concomitant]
     Active Substance: ATORVASTATIN
     Indication: ILL-DEFINED DISORDER
     Dosage: TAKE ONE AT NIGHT
     Dates: start: 20210225

REACTIONS (4)
  - Hypoaesthesia oral [Recovered/Resolved]
  - Rash [Recovered/Resolved]
  - Lip swelling [Recovered/Resolved]
  - Pharyngeal swelling [Recovered/Resolved]

NARRATIVE: CASE EVENT DATE: 20210421
